FAERS Safety Report 20314586 (Version 3)
Quarter: 2022Q1

REPORT INFORMATION
  Report Type: Spontaneous
  Country: CA (occurrence: CA)
  Receive Date: 20220109
  Receipt Date: 20220223
  Transmission Date: 20220423
  Serious: Yes (Hospitalization, Other)
  Sender: FDA-Public Use
  Company Number: CA-CELLTRION INC.-2017CA010560

PATIENT

DRUGS (7)
  1. INFLECTRA [Suspect]
     Active Substance: INFLIXIMAB-DYYB
     Indication: Colitis ulcerative
     Dosage: 600 MG,EVERY 0, 2, 6 AND THEN EVERY 8 WEEKS
     Route: 042
     Dates: start: 20170721, end: 20180103
  2. INFLECTRA [Suspect]
     Active Substance: INFLIXIMAB-DYYB
     Dosage: 600 MG,EVERY 0, 2, 6 AND THEN EVERY 8 WEEKS
     Route: 042
     Dates: start: 20210413, end: 20210413
  3. LITHIUM [Concomitant]
     Active Substance: LITHIUM
     Dosage: UNK
     Route: 065
  4. MOMETASONE FUROATE MONOHYDRATE [Concomitant]
     Active Substance: MOMETASONE FUROATE MONOHYDRATE
     Dosage: UNK
     Route: 045
     Dates: start: 20170826
  5. RIZATRIPTAN [Concomitant]
     Active Substance: RIZATRIPTAN
     Dosage: UNK
     Route: 065
  6. TYLENOL [Concomitant]
     Active Substance: ACETAMINOPHEN
     Dosage: UNK
     Route: 065
  7. TRAZODONE [Concomitant]
     Active Substance: TRAZODONE HYDROCHLORIDE
     Dosage: UNK
     Route: 065

REACTIONS (23)
  - Arthralgia [Unknown]
  - Vision blurred [Unknown]
  - Malaise [Recovering/Resolving]
  - Diarrhoea [Recovered/Resolved]
  - Paraesthesia oral [Recovered/Resolved]
  - Paraesthesia [Recovered/Resolved]
  - Dizziness [Not Recovered/Not Resolved]
  - Dehydration [Recovered/Resolved]
  - Sinusitis [Recovered/Resolved]
  - Acne [Unknown]
  - Lethargy [Unknown]
  - Pruritus [Unknown]
  - Weight increased [Unknown]
  - Eye pruritus [Unknown]
  - Viral upper respiratory tract infection [Not Recovered/Not Resolved]
  - Pyrexia [Not Recovered/Not Resolved]
  - Oropharyngeal pain [Not Recovered/Not Resolved]
  - Nasal congestion [Not Recovered/Not Resolved]
  - Rash vesicular [Recovering/Resolving]
  - Eye irritation [Not Recovered/Not Resolved]
  - Psoriasis [Unknown]
  - Urticaria [Unknown]
  - Serum sickness [Unknown]

NARRATIVE: CASE EVENT DATE: 20170701
